FAERS Safety Report 14691603 (Version 3)
Quarter: 2018Q2

REPORT INFORMATION
  Report Type: Spontaneous
  Country: JP (occurrence: JP)
  Receive Date: 20180328
  Receipt Date: 20180424
  Transmission Date: 20180711
  Serious: Yes (Other)
  Sender: FDA-Public Use
  Company Number: JP-BEH-2018089224

PATIENT
  Age: 31 Year
  Sex: Female

DRUGS (4)
  1. ALBUMIN HUMAN (NC) [Suspect]
     Active Substance: ALBUMIN HUMAN
     Indication: ASCITES
     Dosage: UNK G, UNK
     Route: 042
  2. ALBUMIN HUMAN (NC) [Suspect]
     Active Substance: ALBUMIN HUMAN
     Indication: PLEURAL EFFUSION
  3. ALBUMIN HUMAN (NC) [Suspect]
     Active Substance: ALBUMIN HUMAN
     Indication: OEDEMA
  4. ALBUMIN HUMAN (NC) [Suspect]
     Active Substance: ALBUMIN HUMAN
     Indication: NEPHRITIC SYNDROME

REACTIONS (2)
  - Foetal death [Unknown]
  - Drug effect incomplete [Unknown]
